FAERS Safety Report 6567459-5 (Version None)
Quarter: 2010Q1

REPORT INFORMATION
  Report Type: 
  Country: None (occurrence: None)
  Receive Date: 20100127
  Receipt Date: 20100121
  Transmission Date: 20100710
  Serious: Yes (Hospitalization)
  Sender: FDA-Public Use
  Company Number: SPV1-2010-00116

PATIENT
  Sex: Male

DRUGS (1)
  1. LIALDA [Suspect]
     Indication: DRUG USE FOR UNKNOWN INDICATION
     Dosage: ORAL
     Route: 048

REACTIONS (3)
  - ENDOCARDITIS [None]
  - MYOCARDITIS [None]
  - PERICARDITIS [None]
